FAERS Safety Report 5954720-8 (Version None)
Quarter: 2008Q4

REPORT INFORMATION
  Report Type: 
  Country: None (occurrence: None)
  Receive Date: 20081117
  Receipt Date: 20081107
  Transmission Date: 20090506
  Serious: Yes (Hospitalization)
  Sender: FDA-Public Use
  Company Number: PHHY2008AU27994

PATIENT
  Sex: Male

DRUGS (5)
  1. GLEEVEC [Suspect]
     Indication: GASTROINTESTINAL STROMAL TUMOUR
     Dosage: 400 MG/DAY
  2. GLEEVEC [Suspect]
     Dosage: 600 MG/DAY
     Dates: start: 20080813
  3. SUTENT [Suspect]
     Indication: GASTROINTESTINAL STROMAL TUMOUR
     Dosage: 50 MG/DAY
     Route: 048
     Dates: start: 20080924
  4. PANADEINE [Concomitant]
     Indication: PAIN
     Dosage: 4 TAB
     Route: 048
  5. FENTANYL [Concomitant]
     Indication: PAIN
     Dosage: 12 MG
     Route: 061

REACTIONS (8)
  - ASCITES [None]
  - BLOOD CREATININE INCREASED [None]
  - DIARRHOEA [None]
  - DRUG INTOLERANCE [None]
  - LETHARGY [None]
  - MOBILITY DECREASED [None]
  - OEDEMA PERIPHERAL [None]
  - PLEURAL EFFUSION [None]
